FAERS Safety Report 7963243-6 (Version None)
Quarter: 2011Q4

REPORT INFORMATION
  Report Type: 
  Country: None (occurrence: None)
  Receive Date: 20111208
  Receipt Date: 20111130
  Transmission Date: 20120403
  Serious: No
  Sender: FDA-Public Use
  Company Number: US-BIOGENIDEC-2011BI014363

PATIENT
  Sex: Male

DRUGS (3)
  1. TYSABRI [Suspect]
     Indication: MULTIPLE SCLEROSIS
     Route: 042
     Dates: start: 20091210, end: 20110602
  2. TYSABRI [Suspect]
     Route: 042
     Dates: start: 20090514, end: 20091112
  3. TYSABRI [Suspect]
     Route: 042
     Dates: start: 20111121

REACTIONS (6)
  - PHOTOPHOBIA [None]
  - GENERAL SYMPTOM [None]
  - BALANCE DISORDER [None]
  - AURA [None]
  - METAMORPHOPSIA [None]
  - TREMOR [None]
